FAERS Safety Report 16734890 (Version 2)
Quarter: 2019Q3

REPORT INFORMATION
  Report Type: Spontaneous
  Country: GB (occurrence: GB)
  Receive Date: 20190823
  Receipt Date: 20190912
  Transmission Date: 20191005
  Serious: Yes (Other)
  Sender: FDA-Public Use
  Company Number: GB-BEH-2019105866

PATIENT
  Sex: Male

DRUGS (2)
  1. FACTOR VIII RECOMBINANT (NC) [Suspect]
     Active Substance: ANTIHEMOPHILIC FACTOR, HUMAN RECOMBINANT
     Indication: FACTOR VIII DEFICIENCY
     Route: 065
  2. HUMAN FACTOR VIII (NC) [Suspect]
     Active Substance: ANTIHEMOPHILIC FACTOR HUMAN
     Indication: FACTOR VIII DEFICIENCY
     Route: 065

REACTIONS (1)
  - Factor VIII inhibition [Unknown]
